FAERS Safety Report 10199851 (Version 1)
Quarter: 2014Q2

REPORT INFORMATION
  Report Type: Spontaneous
  Country: US (occurrence: US)
  Receive Date: 20140527
  Receipt Date: 20140527
  Transmission Date: 20141212
  Serious: Yes (Hospitalization)
  Sender: FDA-Public Use
  Company Number: US-ENDO PHARMACEUTICALS INC.-GILD20130027

PATIENT
  Age: 28 Year
  Sex: Female
  Weight: 84.9 kg

DRUGS (2)
  1. GILDESS FE 1/20 [Suspect]
     Indication: MENSTRUAL CYCLE MANAGEMENT
     Dosage: 1/20
     Route: 048
     Dates: end: 20131126
  2. GILDESS FE 1/20 [Suspect]
     Dosage: 1/20
     Route: 048
     Dates: start: 2009

REACTIONS (1)
  - Pulmonary embolism [Recovering/Resolving]
